FAERS Safety Report 4443866-1 (Version None)
Quarter: 2004Q3

REPORT INFORMATION
  Report Type: 
  Country: None (occurrence: None)
  Receive Date: 20040729
  Receipt Date: 20040519
  Transmission Date: 20050211
  Serious: Yes (Other)
  Sender: FDA-Public Use
  Company Number: US-JNJFOC-20040504845

PATIENT
  Sex: Male

DRUGS (1)
  1. RISPERDAL [Suspect]
     Dosage: 5 MG,   IN 1 DAY, ORAL
     Route: 048
     Dates: start: 19990101

REACTIONS (1)
  - TARDIVE DYSKINESIA [None]
